FAERS Safety Report 10062916 (Version 1)
Quarter: 2014Q2

REPORT INFORMATION
  Report Type: Spontaneous
  Country: US (occurrence: US)
  Receive Date: 20140407
  Receipt Date: 20140407
  Transmission Date: 20141212
  Serious: No
  Sender: FDA-Public Use
  Company Number: US-BAYER-2014-050413

PATIENT
  Age: 59 Year
  Sex: Female
  Weight: 76.19 kg

DRUGS (2)
  1. ALEVE CAPLET [Suspect]
     Indication: BACK PAIN
     Dosage: 1 DF, PRN
     Route: 048
     Dates: start: 2004
  2. LEVOTHROID [Concomitant]

REACTIONS (3)
  - Dizziness [Recovered/Resolved]
  - Flushing [Recovered/Resolved]
  - Drug ineffective [None]
